FAERS Safety Report 22270421 (Version 1)
Quarter: 2023Q2

REPORT INFORMATION
  Report Type: Spontaneous
  Country: IT (occurrence: IT)
  Receive Date: 20230501
  Receipt Date: 20230501
  Transmission Date: 20230721
  Serious: Yes (Hospitalization)
  Sender: FDA-Public Use
  Company Number: IT-MYLANLABS-2023M1037407

PATIENT
  Age: 5 Year

DRUGS (4)
  1. VORICONAZOLE [Suspect]
     Active Substance: VORICONAZOLE
     Indication: Aspergillus infection
     Dosage: UNK
     Route: 065
  2. VORICONAZOLE [Suspect]
     Active Substance: VORICONAZOLE
     Dosage: UNK, DOSE OF VORICONAZOLE WAS REDUCED
     Route: 065
  3. VORICONAZOLE [Suspect]
     Active Substance: VORICONAZOLE
     Dosage: UNK, DOSE OF VORICONAZOLE WAS FURTHER REDUCED
     Route: 065
  4. CASPOFUNGIN [Concomitant]
     Active Substance: CASPOFUNGIN
     Indication: Aspergillus infection
     Dosage: UNK
     Route: 065

REACTIONS (5)
  - Sinus tachycardia [Unknown]
  - Gastrointestinal disorder [Unknown]
  - Toxicity to various agents [Recovering/Resolving]
  - Nausea [Unknown]
  - Drug level increased [Recovered/Resolved]
